FAERS Safety Report 25866083 (Version 1)
Quarter: 2025Q3

REPORT INFORMATION
  Report Type: Spontaneous
  Country: GB (occurrence: GB)
  Receive Date: 20250930
  Receipt Date: 20250930
  Transmission Date: 20251020
  Serious: Yes (Death)
  Sender: INCYTE
  Company Number: GB-002147023-NVSC2025GB151061

PATIENT

DRUGS (1)
  1. RUXOLITINIB [Suspect]
     Active Substance: RUXOLITINIB
     Indication: Malignant spinal cord compression
     Dosage: 15 MG, BID, JAKAVI 15MG BLIST TAB 56

REACTIONS (2)
  - Off label use [Unknown]
  - Death [Fatal]
